FAERS Safety Report 7330376-7 (Version None)
Quarter: 2011Q1

REPORT INFORMATION
  Report Type: 
  Country: None (occurrence: None)
  Receive Date: 20110304
  Receipt Date: 20110222
  Transmission Date: 20110831
  Serious: Yes (Hospitalization, Other)
  Sender: FDA-Public Use
  Company Number: US-BIOGENIDEC-2011BI006033

PATIENT
  Age: 60 Year
  Sex: Female
  Weight: 44 kg

DRUGS (1)
  1. AVONEX [Suspect]
     Indication: MULTIPLE SCLEROSIS
     Route: 030
     Dates: start: 20050401, end: 20101101

REACTIONS (7)
  - SPINAL DISORDER [None]
  - FALL [None]
  - WEIGHT DECREASED [None]
  - ABDOMINAL HERNIA [None]
  - THROMBOSIS [None]
  - HERNIA HIATUS REPAIR [None]
  - OEDEMA PERIPHERAL [None]
